FAERS Safety Report 4485208-1 (Version None)
Quarter: 2004Q4

REPORT INFORMATION
  Report Type: 
  Country: None (occurrence: None)
  Receive Date: 20041026
  Receipt Date: 20040517
  Transmission Date: 20050328
  Serious: No
  Sender: FDA-Public Use
  Company Number: US-BRISTOL-MYERS SQUIBB COMPANY-12589529

PATIENT
  Age: 35 Year
  Sex: Female
  Weight: 103 kg

DRUGS (3)
  1. GLUCOPHAGE [Suspect]
     Indication: BLOOD INSULIN INCREASED
     Dates: start: 20030101
  2. GLUCOPHAGE XR [Suspect]
     Indication: BLOOD INSULIN INCREASED
     Route: 048
  3. LOPRESSOR [Concomitant]

REACTIONS (2)
  - ABDOMINAL DISCOMFORT [None]
  - ALOPECIA [None]
